FAERS Safety Report 4891990-1 (Version None)
Quarter: 2006Q1

REPORT INFORMATION
  Report Type: 
  Country: None (occurrence: None)
  Receive Date: 20060123
  Receipt Date: 20060111
  Transmission Date: 20060701
  Serious: Yes (Other)
  Sender: FDA-Public Use
  Company Number: JP200601001934

PATIENT
  Age: 67 Year
  Sex: Male

DRUGS (1)
  1. GEMZAR [Suspect]
     Indication: MALIGNANT NEOPLASM OF RENAL PELVIS
     Dosage: INTRAVENOUS
     Route: 042

REACTIONS (1)
  - HYPONATRAEMIA [None]
